FAERS Safety Report 5041218-7 (Version None)
Quarter: 2006Q3

REPORT INFORMATION
  Report Type: 
  Country: None (occurrence: None)
  Receive Date: 20060703
  Receipt Date: 20060601
  Transmission Date: 20061208
  Serious: Yes (Hospitalization)
  Sender: FDA-Public Use
  Company Number: J200601489

PATIENT
  Age: 53 Year
  Sex: Female

DRUGS (12)
  1. SAWACILLIN [Suspect]
     Indication: TONSILLITIS
     Dosage: 250MG THREE TIMES PER DAY
     Route: 048
     Dates: start: 20060417, end: 20060420
  2. AZELASTINE HCL [Suspect]
     Dosage: 1MG THREE TIMES PER DAY
     Route: 048
     Dates: start: 20060308, end: 20060415
  3. HISPORAN [Suspect]
     Dosage: 3MG THREE TIMES PER DAY
     Route: 048
     Dates: start: 20060308, end: 20060415
  4. CLARITHROMYCIN [Suspect]
     Indication: LARYNGOTRACHEO BRONCHITIS
     Dosage: 200MG TWICE PER DAY
     Route: 048
     Dates: start: 20060420, end: 20060424
  5. PONTAL [Suspect]
     Indication: TONSILLITIS
     Dosage: 750MG PER DAY
     Route: 048
     Dates: start: 20060417, end: 20060420
  6. LYSOZYME HYDROCHLORIDE [Concomitant]
     Indication: TONSILLITIS
     Dosage: 90MG THREE TIMES PER DAY
     Route: 048
     Dates: start: 20060417, end: 20060420
  7. ALESION [Concomitant]
     Indication: DRUG USE FOR UNKNOWN INDICATION
     Route: 048
  8. NIPOLAZIN [Concomitant]
     Indication: DRUG USE FOR UNKNOWN INDICATION
     Route: 048
  9. PREMARIN [Concomitant]
     Dosage: .625MG PER DAY
     Route: 048
     Dates: start: 20060401, end: 20060524
  10. MUCODYNE [Concomitant]
     Indication: LARYNGOTRACHEO BRONCHITIS
     Dosage: 500MG THREE TIMES PER DAY
     Route: 048
     Dates: start: 20060420, end: 20060424
  11. ASVERIN [Concomitant]
     Indication: LARYNGOTRACHEO BRONCHITIS
     Dosage: 20MG THREE TIMES PER DAY
     Route: 048
     Dates: start: 20060420, end: 20060424
  12. GLORIAMIN [Concomitant]
     Indication: LARYNGOTRACHEO BRONCHITIS
     Dosage: .5G THREE TIMES PER DAY
     Route: 048
     Dates: start: 20060420, end: 20060424

REACTIONS (3)
  - LARYNGOTRACHEO BRONCHITIS [None]
  - PNEUMONIA [None]
  - PYREXIA [None]
